FAERS Safety Report 16662881 (Version 1)
Quarter: 2019Q3

REPORT INFORMATION
  Report Type: Spontaneous
  Country: US (occurrence: US)
  Receive Date: 20190802
  Receipt Date: 20190802
  Transmission Date: 20191004
  Serious: Yes (Hospitalization)
  Sender: FDA-Public Use
  Company Number: US-ENDO PHARMACEUTICALS INC-2018-042512

PATIENT
  Age: 53 Year
  Sex: Male
  Weight: 148.75 kg

DRUGS (3)
  1. TESTOPEL [Suspect]
     Active Substance: TESTOSTERONE
     Indication: ANDROGEN REPLACEMENT THERAPY
     Dosage: UNKUNK UNK, UNKNOWN
     Route: 065
     Dates: start: 201303, end: 201307
  2. LIPITOR [Concomitant]
     Active Substance: ATORVASTATIN CALCIUM
     Indication: PRODUCT USED FOR UNKNOWN INDICATION
     Dosage: 40 MG, DAILY
     Route: 065
  3. ANDROGEL [Suspect]
     Active Substance: TESTOSTERONE
     Indication: ANDROGEN REPLACEMENT THERAPY
     Dosage: UNK UNKNOWN, UNKNOWN
     Route: 065
     Dates: start: 201301, end: 201307

REACTIONS (4)
  - Pyrexia [Unknown]
  - Pulmonary embolism [Unknown]
  - Prescribed overdose [Unknown]
  - Cough [Unknown]

NARRATIVE: CASE EVENT DATE: 20130723
